FAERS Safety Report 5468516-7 (Version None)
Quarter: 2007Q3

REPORT INFORMATION
  Report Type: 
  Country: None (occurrence: None)
  Receive Date: 20070926
  Receipt Date: 20070806
  Transmission Date: 20080115
  Serious: No
  Sender: FDA-Public Use
  Company Number: US-BRISTOL-MYERS SQUIBB COMPANY-13869441

PATIENT
  Weight: 59 kg

DRUGS (4)
  1. ORENCIA [Suspect]
     Indication: RHEUMATOID ARTHRITIS
     Route: 042
  2. METHOTREXATE [Concomitant]
  3. IBUPROFEN [Concomitant]
  4. PREDNISONE [Concomitant]

REACTIONS (1)
  - BLOOD PRESSURE INCREASED [None]
